FAERS Safety Report 12935694 (Version 5)
Quarter: 2017Q1

REPORT INFORMATION
  Report Type: Report from Study
  Country: IT (occurrence: IT)
  Receive Date: 20161114
  Receipt Date: 20170126
  Transmission Date: 20170428
  Serious: Yes (Hospitalization)
  Sender: FDA-Public Use
  Company Number: IT-ROCHE-1852476

PATIENT
  Age: 67 Year
  Sex: Male
  Weight: 75 kg

DRUGS (15)
  1. LANSOPRAZOLO [Concomitant]
     Active Substance: LANSOPRAZOLE
     Indication: PROPHYLAXIS
     Route: 065
     Dates: start: 20160827
  2. DEPALGOS [Concomitant]
     Active Substance: ACETAMINOPHEN\OXYCODONE HYDROCHLORIDE
     Indication: PAIN
     Route: 065
     Dates: start: 20161012, end: 20161016
  3. PEMETREXED [Suspect]
     Active Substance: PEMETREXED
     Indication: NON-SMALL CELL LUNG CANCER STAGE IV
     Dosage: MOST RECENT DOSE (900 MG) PRIOR TO ONSET OF THE FIRST EPISODE OF DIARRHEA: 27/OCT/2016?MOST RECENT D
     Route: 042
     Dates: start: 20161027
  4. RANITIDINE. [Concomitant]
     Active Substance: RANITIDINE
     Indication: PROPHYLAXIS
     Route: 065
     Dates: start: 20161107, end: 20161108
  5. FOLINGRAV [Concomitant]
     Indication: PREMEDICATION
     Route: 065
     Dates: start: 20161019
  6. DIOSMECTAL [Concomitant]
     Active Substance: UNSPECIFIED INGREDIENT
     Indication: DIARRHOEA
     Route: 065
     Dates: start: 20161012
  7. LOBIVON [Concomitant]
     Active Substance: NEBIVOLOL HYDROCHLORIDE
     Indication: HYPERTENSION
     Route: 065
     Dates: start: 20160115
  8. TACHIPIRINA [Concomitant]
     Active Substance: ACETAMINOPHEN
     Indication: PAIN
     Route: 065
     Dates: start: 20161012
  9. ATEZOLIZUMAB [Suspect]
     Active Substance: ATEZOLIZUMAB
     Indication: NON-SMALL CELL LUNG CANCER STAGE IV
     Dosage: MOST RECENT DOSE PRIOR TO ONSET OF FIRST EPISODE OF DIARRHEA: 27/OCT/2016?MOST RECENT DOSE PRIOR TO
     Route: 042
     Dates: start: 20161027
  10. TAPAZOLE [Concomitant]
     Active Substance: METHIMAZOLE
     Indication: GOITRE
     Route: 065
     Dates: start: 20160201
  11. LEVETIRACETAM. [Concomitant]
     Active Substance: LEVETIRACETAM
     Indication: CONVULSION PROPHYLAXIS
     Route: 065
     Dates: start: 20160827
  12. FENTALGON [Concomitant]
     Indication: PAIN
     Route: 065
     Dates: start: 20161027
  13. DOBETIN [Concomitant]
     Active Substance: CYANOCOBALAMIN
     Indication: PREMEDICATION
     Route: 065
     Dates: start: 20161019
  14. CARBOPLATIN. [Suspect]
     Active Substance: CARBOPLATIN
     Indication: NON-SMALL CELL LUNG CANCER STAGE IV
     Dosage: AREA UNDER THE CONCENTRATION CURVE (AUC) = 6 MG/ML/MIN?MOST RECENT DOSE (800 MG) PRIOR TO ONSET OF F
     Route: 042
     Dates: start: 20161027
  15. MYCOSTATIN [Concomitant]
     Active Substance: NYSTATIN
     Indication: FUNGAL INFECTION
     Route: 065
     Dates: start: 20161108, end: 20161108

REACTIONS (2)
  - Weight decreased [Recovering/Resolving]
  - Diarrhoea [Recovering/Resolving]

NARRATIVE: CASE EVENT DATE: 20161029
